FAERS Safety Report 6840069-8 (Version None)
Quarter: 2010Q2

REPORT INFORMATION
  Report Type: 
  Country: None (occurrence: None)
  Receive Date: 20100629
  Receipt Date: 20100305
  Transmission Date: 20101027
  Serious: No
  Sender: FDA-Public Use
  Company Number: US-WYE-H13995210

PATIENT
  Age: 57 Year
  Sex: Female
  Weight: 61.29 kg

DRUGS (6)
  1. PRISTIQ [Suspect]
     Indication: DEPRESSION
     Dosage: 50 MG 1X PER 2 DAY, ORAL 50 MG 1X PER 1 DAY, ORAL
     Route: 048
     Dates: start: 20100223, end: 20100303
  2. PRISTIQ [Suspect]
     Indication: DEPRESSION
     Dosage: 50 MG 1X PER 2 DAY, ORAL 50 MG 1X PER 1 DAY, ORAL
     Route: 048
     Dates: start: 20100304
  3. ACCUPRIL [Concomitant]
  4. VALIUM [Concomitant]
  5. CODEINE SUL TAB [Concomitant]
  6. FENTANYL-100 [Concomitant]

REACTIONS (6)
  - CHEST PAIN [None]
  - DIZZINESS [None]
  - DYSPEPSIA [None]
  - HEADACHE [None]
  - NAUSEA [None]
  - PAIN IN EXTREMITY [None]
